FAERS Safety Report 5002549-X (Version None)
Quarter: 2006Q2

REPORT INFORMATION
  Report Type: 
  Country: None (occurrence: None)
  Receive Date: 20060510
  Receipt Date: 20060427
  Transmission Date: 20061013
  Serious: Yes (Hospitalization)
  Sender: FDA-Public Use
  Company Number: HQWYE067701MAY06

PATIENT
  Age: 49 Year
  Sex: Female

DRUGS (3)
  1. RAPAMUNE [Suspect]
     Indication: PROPHYLAXIS AGAINST TRANSPLANT REJECTION
     Dosage: 5 MG ORAL
     Route: 048
     Dates: start: 20051115, end: 20060427
  2. CELLCEPT [Concomitant]
  3. LESCOL [Concomitant]

REACTIONS (1)
  - ARTHRITIS [None]
